FAERS Safety Report 25374705 (Version 2)
Quarter: 2025Q2

REPORT INFORMATION
  Report Type: Spontaneous
  Country: MX (occurrence: MX)
  Receive Date: 20250529
  Receipt Date: 20250610
  Transmission Date: 20250717
  Serious: Yes (Other)
  Sender: SANDOZ
  Company Number: MX-002147023-NVSC2025MX085524

PATIENT
  Age: 74 Year
  Sex: Male
  Weight: 63 kg

DRUGS (8)
  1. FEMARA [Suspect]
     Active Substance: LETROZOLE
     Indication: Breast cancer male
     Dosage: 2.5 MG, Q24H (1 OF 2.5MG)
     Route: 048
     Dates: start: 202305, end: 202310
  2. FEMARA [Suspect]
     Active Substance: LETROZOLE
     Dosage: 2.5 MG, Q24H (1 OF 2.5MG)
     Route: 048
     Dates: start: 202505
  3. Alfa Ketoanalogues nos [Concomitant]
     Indication: Renal disorder
     Route: 048
     Dates: start: 2021
  4. ALLOPURINOL [Concomitant]
     Active Substance: ALLOPURINOL
     Indication: Product used for unknown indication
     Dosage: 1 DOSAGE FORM, Q24H (STARTED SEVERAL YEARS AGO)
     Route: 048
  5. ANASTROZOLE [Concomitant]
     Active Substance: ANASTROZOLE
     Indication: Breast cancer male
     Dosage: 1 DOSAGE FORM, Q24H (1 OF 1MG)
     Route: 048
     Dates: start: 202311, end: 202503
  6. ATORVASTATIN [Concomitant]
     Active Substance: ATORVASTATIN
     Indication: Blood triglycerides increased
     Dosage: 1 DOSAGE FORM, Q24H (STARTED SEVERAL YEARS AGO)
     Route: 048
  7. ENALAPRIL [Concomitant]
     Active Substance: ENALAPRIL
     Indication: Hypertension
     Dosage: 1 DOSAGE FORM, Q24H (STARTED SEVERAL YEARS AGO)
     Route: 048
  8. INSULIN NOS [Concomitant]
     Active Substance: INSULIN NOS
     Indication: Diabetes mellitus
     Dosage: 10 IU, Q24H (INJECTABLE SOLUTION)
     Route: 058
     Dates: start: 2021

REACTIONS (6)
  - Skin cancer metastatic [Not Recovered/Not Resolved]
  - Skin lesion [Recovering/Resolving]
  - Weight decreased [Recovered/Resolved]
  - Mood disorder due to a general medical condition [Recovering/Resolving]
  - Decreased appetite [Recovering/Resolving]
  - Off label use [Unknown]

NARRATIVE: CASE EVENT DATE: 20250401
